FAERS Safety Report 13929010 (Version 1)
Quarter: 2017Q3

REPORT INFORMATION
  Report Type: Spontaneous
  Country: CA (occurrence: CA)
  Receive Date: 20170901
  Receipt Date: 20170901
  Transmission Date: 20171127
  Serious: Yes (Life-Threatening, Hospitalization, Other)
  Sender: FDA-Public Use
  Company Number: CA-ORION CORPORATION ORION PHARMA-TREX2017-2678

PATIENT
  Sex: Male

DRUGS (26)
  1. METHOTREXATE (TRADE NAME UNKNOWN) [Suspect]
     Active Substance: METHOTREXATE
     Route: 065
  2. ACTEMRA [Suspect]
     Active Substance: TOCILIZUMAB
     Indication: RHEUMATOID ARTHRITIS
  3. GOLD [Suspect]
     Active Substance: GOLD
     Indication: RHEUMATOID ARTHRITIS
     Route: 065
  4. ORENCIA [Suspect]
     Active Substance: ABATACEPT
     Indication: RHEUMATOID ARTHRITIS
     Route: 042
  5. REMICADE [Suspect]
     Active Substance: INFLIXIMAB
     Indication: SYSTEMIC LUPUS ERYTHEMATOSUS
     Route: 065
  6. ENBREL [Suspect]
     Active Substance: ETANERCEPT
     Indication: SYSTEMIC LUPUS ERYTHEMATOSUS
     Route: 065
  7. LEFLUNOMIDE. [Suspect]
     Active Substance: LEFLUNOMIDE
     Indication: SYSTEMIC LUPUS ERYTHEMATOSUS
     Route: 065
  8. PLAQUENIL [Suspect]
     Active Substance: HYDROXYCHLOROQUINE SULFATE
     Indication: SYSTEMIC LUPUS ERYTHEMATOSUS
     Route: 065
  9. PLAQUENIL [Suspect]
     Active Substance: HYDROXYCHLOROQUINE SULFATE
     Indication: RHEUMATOID ARTHRITIS
  10. RITUXAN [Suspect]
     Active Substance: RITUXIMAB
     Indication: SYSTEMIC LUPUS ERYTHEMATOSUS
     Route: 065
  11. HYDROXYCHLOROQUINE SULFATE. [Suspect]
     Active Substance: HYDROXYCHLOROQUINE SULFATE
     Indication: SYSTEMIC LUPUS ERYTHEMATOSUS
  12. ENBREL [Suspect]
     Active Substance: ETANERCEPT
     Indication: RHEUMATOID ARTHRITIS
  13. SULFASALAZINE. [Suspect]
     Active Substance: SULFASALAZINE
     Indication: RHEUMATOID ARTHRITIS
  14. HUMIRA [Suspect]
     Active Substance: ADALIMUMAB
     Indication: RHEUMATOID ARTHRITIS
  15. ANAKINRA [Suspect]
     Active Substance: ANAKINRA
     Indication: SYSTEMIC LUPUS ERYTHEMATOSUS
     Route: 065
  16. ILARIS [Suspect]
     Active Substance: CANAKINUMAB
     Indication: RHEUMATOID ARTHRITIS
  17. LEFLUNOMIDE. [Suspect]
     Active Substance: LEFLUNOMIDE
     Indication: RHEUMATOID ARTHRITIS
  18. REMICADE [Suspect]
     Active Substance: INFLIXIMAB
     Indication: RHEUMATOID ARTHRITIS
  19. HYDROXYCHLOROQUINE SULFATE. [Suspect]
     Active Substance: HYDROXYCHLOROQUINE SULFATE
     Indication: RHEUMATOID ARTHRITIS
     Route: 065
  20. ACTEMRA [Suspect]
     Active Substance: TOCILIZUMAB
     Indication: SYSTEMIC LUPUS ERYTHEMATOSUS
     Route: 065
  21. ANAKINRA [Suspect]
     Active Substance: ANAKINRA
     Indication: RHEUMATOID ARTHRITIS
  22. HUMIRA [Suspect]
     Active Substance: ADALIMUMAB
     Indication: SYSTEMIC LUPUS ERYTHEMATOSUS
     Route: 058
  23. ILARIS [Suspect]
     Active Substance: CANAKINUMAB
     Indication: SYSTEMIC LUPUS ERYTHEMATOSUS
     Route: 065
  24. RITUXAN [Suspect]
     Active Substance: RITUXIMAB
     Indication: RHEUMATOID ARTHRITIS
  25. SULFASALAZINE. [Suspect]
     Active Substance: SULFASALAZINE
     Indication: SYSTEMIC LUPUS ERYTHEMATOSUS
     Route: 065
  26. ORENCIA [Suspect]
     Active Substance: ABATACEPT
     Indication: SYSTEMIC LUPUS ERYTHEMATOSUS
     Route: 065

REACTIONS (8)
  - Deep vein thrombosis [Recovered/Resolved]
  - Pain [Recovered/Resolved]
  - Drug ineffective [Recovered/Resolved]
  - Joint swelling [Recovered/Resolved]
  - Pulmonary embolism [Recovered/Resolved]
  - Renal failure [Recovered/Resolved]
  - Apparent death [Recovered/Resolved]
  - Diverticulitis [Recovered/Resolved]
